FAERS Safety Report 14060125 (Version 1)
Quarter: 2017Q4

REPORT INFORMATION
  Report Type: Report from Study
  Country: US (occurrence: US)
  Receive Date: 20171006
  Receipt Date: 20171006
  Transmission Date: 20180321
  Serious: No
  Sender: FDA-Public Use
  Company Number: US-AMGEN-USASL2017043459

PATIENT
  Age: 66 Year
  Sex: Female

DRUGS (3)
  1. VITAMIN D3 [Concomitant]
     Active Substance: CHOLECALCIFEROL
     Dosage: 5000 UNIT, QD
  2. PROLIA [Suspect]
     Active Substance: DENOSUMAB
     Indication: BONE DENSITY ABNORMAL
     Dosage: 60 MG, Q6MO
     Route: 058
  3. CAL [Concomitant]
     Dosage: 1200 MG, UNK

REACTIONS (2)
  - Off label use [Unknown]
  - Osteoporosis [Unknown]
